FAERS Safety Report 10481749 (Version 14)
Quarter: 2015Q4

REPORT INFORMATION
  Report Type: Report from Study
  Country: CA (occurrence: CA)
  Receive Date: 20140929
  Receipt Date: 20151214
  Transmission Date: 20160304
  Serious: Yes (Other)
  Sender: FDA-Public Use
  Company Number: PHHY2011CA83148

PATIENT
  Age: 57 Year
  Sex: Female

DRUGS (12)
  1. CABERGOLINE. [Concomitant]
     Active Substance: CABERGOLINE
     Indication: PRODUCT USED FOR UNKNOWN INDICATION
     Dosage: 1 DF, QW
     Route: 065
     Dates: start: 201308, end: 20131119
  2. RAMIPRIL. [Concomitant]
     Active Substance: RAMIPRIL
     Indication: PRODUCT USED FOR UNKNOWN INDICATION
     Route: 065
  3. METFORMIN [Concomitant]
     Active Substance: METFORMIN HYDROCHLORIDE
     Indication: BLOOD GLUCOSE INCREASED
     Dosage: 500 MG, BID
     Route: 065
  4. METFORMIN [Concomitant]
     Active Substance: METFORMIN HYDROCHLORIDE
     Dosage: 1000 MG, BID (IN THE MORNING AND AT SUPPER)
     Route: 065
  5. SOMAVERT [Concomitant]
     Active Substance: PEGVISOMANT
     Indication: PRODUCT USED FOR UNKNOWN INDICATION
     Route: 065
  6. CALCIUM [Concomitant]
     Active Substance: CALCIUM
     Indication: PRODUCT USED FOR UNKNOWN INDICATION
     Route: 065
  7. LEVOTHYROXIN [Concomitant]
     Active Substance: LEVOTHYROXINE
     Indication: PRODUCT USED FOR UNKNOWN INDICATION
     Route: 065
  8. BROMOCRIPTINE [Concomitant]
     Active Substance: BROMOCRIPTINE
     Indication: PRODUCT USED FOR UNKNOWN INDICATION
     Dosage: 2.5 MG, QD
     Route: 065
  9. SANDOSTATIN LAR DEPOT [Suspect]
     Active Substance: OCTREOTIDE ACETATE
     Indication: ACROMEGALY
     Dosage: 30 MG, QMO (EVERY 4 WEEKS)
     Route: 030
     Dates: start: 20110628
  10. METFORMIN [Concomitant]
     Active Substance: METFORMIN HYDROCHLORIDE
     Dosage: 750 MG, BID
     Route: 065
     Dates: start: 20130905
  11. METFORMIN [Concomitant]
     Active Substance: METFORMIN HYDROCHLORIDE
     Dosage: 1250 MG, (750MG IN THE MORNING AND 500 MG IN THE EVENING)
     Route: 065
  12. VITAMIN D [Concomitant]
     Active Substance: CHOLECALCIFEROL
     Indication: PRODUCT USED FOR UNKNOWN INDICATION
     Route: 065

REACTIONS (44)
  - Upper limb fracture [Unknown]
  - Insomnia [Unknown]
  - Fatigue [Unknown]
  - Nausea [Unknown]
  - Spinal cord disorder [Unknown]
  - Musculoskeletal pain [Unknown]
  - Rib fracture [Unknown]
  - Pain [Unknown]
  - Oropharyngeal pain [Unknown]
  - Glossodynia [Not Recovered/Not Resolved]
  - Sepsis [Unknown]
  - Fall [Unknown]
  - Blood glucose increased [Unknown]
  - Neck pain [Unknown]
  - Hyperhidrosis [Unknown]
  - Rash [Unknown]
  - Headache [Recovering/Resolving]
  - Chest pain [Unknown]
  - Dry throat [Unknown]
  - Nasopharyngitis [Unknown]
  - Sneezing [Not Recovered/Not Resolved]
  - Dysuria [Recovering/Resolving]
  - Vomiting [Unknown]
  - Eye pain [Not Recovered/Not Resolved]
  - Blood cholesterol increased [Unknown]
  - Tooth injury [Unknown]
  - Paraesthesia [Unknown]
  - Rhinorrhoea [Not Recovered/Not Resolved]
  - Malaise [Not Recovered/Not Resolved]
  - Weight decreased [Unknown]
  - Urinary tract infection [Recovering/Resolving]
  - Blood pressure increased [Unknown]
  - Pyrexia [Recovering/Resolving]
  - Hot flush [Unknown]
  - Red blood cell count decreased [Unknown]
  - Insulin-like growth factor increased [Unknown]
  - Cough [Unknown]
  - Sinusitis [Unknown]
  - Urine odour abnormal [Recovering/Resolving]
  - Heart rate increased [Unknown]
  - Blood glucose fluctuation [Unknown]
  - Pruritus [Unknown]
  - Dizziness [Not Recovered/Not Resolved]
  - Drug ineffective [Unknown]

NARRATIVE: CASE EVENT DATE: 201301
